FAERS Safety Report 13555640 (Version 1)
Quarter: 2017Q2

REPORT INFORMATION
  Report Type: Spontaneous
  Country: DE (occurrence: DE)
  Receive Date: 20170517
  Receipt Date: 20170517
  Transmission Date: 20170830
  Serious: Yes (Death, Hospitalization, Other)
  Sender: FDA-Public Use
  Company Number: DE-MYLANLABS-2017M1029762

PATIENT

DRUGS (1)
  1. DIMETHYL SULFOXIDE. [Suspect]
     Active Substance: DIMETHYL SULFOXIDE
     Indication: SKIN ULCER
     Dosage: 750 TO 900 ML (99.9%) OVER A PERIOD OF 7 TO 10 DAYS
     Route: 048

REACTIONS (10)
  - Overdose [Fatal]
  - Breath odour [Unknown]
  - Tremor [Unknown]
  - Somnolence [Unknown]
  - Toxicity to various agents [Fatal]
  - Acute kidney injury [Fatal]
  - Hepatic failure [Fatal]
  - Angina pectoris [Unknown]
  - Coagulopathy [Unknown]
  - Intentional product misuse [Fatal]
